FAERS Safety Report 7633502-5 (Version None)
Quarter: 2011Q3

REPORT INFORMATION
  Report Type: 
  Country: None (occurrence: None)
  Receive Date: 20110725
  Receipt Date: 20110519
  Transmission Date: 20111222
  Serious: No
  Sender: FDA-Public Use
  Company Number: US-BRISTOL-MYERS SQUIBB COMPANY-15763535

PATIENT

DRUGS (4)
  1. SPRYCEL [Suspect]
  2. REGLAN [Interacting]
  3. GRANISETRON  HCL [Interacting]
  4. SCOPOLAMINE HYDROBROMIDE [Interacting]

REACTIONS (3)
  - VOMITING [None]
  - DRUG INTERACTION [None]
  - NAUSEA [None]
